FAERS Safety Report 8000197-0 (Version None)
Quarter: 2011Q4

REPORT INFORMATION
  Report Type: 
  Country: None (occurrence: None)
  Receive Date: 20111220
  Receipt Date: 20111220
  Transmission Date: 20120403
  Serious: Yes (Life-Threatening)
  Sender: FDA-Public Use
  Company Number: None

PATIENT
  Sex: Female
  Weight: 70.9 kg

DRUGS (1)
  1. ROPINIROLE HYDROCHLORIDE [Suspect]
     Indication: GENERALISED ANXIETY DISORDER
     Dates: start: 20111109, end: 20111119

REACTIONS (6)
  - FEELINGS OF WORTHLESSNESS [None]
  - DRUG INTERACTION [None]
  - THINKING ABNORMAL [None]
  - ANXIETY [None]
  - SUICIDAL IDEATION [None]
  - DRUG DISPENSING ERROR [None]
